FAERS Safety Report 4620350-3 (Version None)
Quarter: 2005Q1

REPORT INFORMATION
  Report Type: 
  Country: None (occurrence: None)
  Receive Date: 20050324
  Receipt Date: 20050316
  Transmission Date: 20050727
  Serious: Yes (Death, Other)
  Sender: FDA-Public Use
  Company Number: HQWYE169217MAR05

PATIENT
  Age: 44 Year
  Sex: Male

DRUGS (3)
  1. EFFEXOR [Suspect]
     Indication: ANXIETY
     Dosage: SEE IMAGE
     Dates: start: 20020329, end: 20020401
  2. EFFEXOR [Suspect]
     Indication: ANXIETY
     Dosage: SEE IMAGE
     Dates: start: 20020402, end: 20020405
  3. EFFEXOR [Suspect]
     Indication: ANXIETY
     Dosage: SEE IMAGE
     Dates: start: 20020406

REACTIONS (11)
  - ANXIETY [None]
  - COMPLETED SUICIDE [None]
  - CRYING [None]
  - GUN SHOT WOUND [None]
  - HALLUCINATION [None]
  - INSOMNIA [None]
  - OBSESSIVE THOUGHTS [None]
  - ORAL INTAKE REDUCED [None]
  - PARAESTHESIA [None]
  - PSYCHOMOTOR HYPERACTIVITY [None]
  - SUICIDAL IDEATION [None]
